FAERS Safety Report 10016344 (Version 1)
Quarter: 2014Q1

REPORT INFORMATION
  Report Type: Spontaneous
  Country: US (occurrence: US)
  Receive Date: 20140317
  Receipt Date: 20140317
  Transmission Date: 20141002
  Serious: Yes (Other)
  Sender: FDA-Public Use
  Company Number: US-PFIZER INC-2014076645

PATIENT
  Sex: Female

DRUGS (1)
  1. LYRICA [Suspect]
     Dosage: UNK
     Dates: start: 201403

REACTIONS (4)
  - Gait disturbance [Unknown]
  - Dizziness [Unknown]
  - Impaired driving ability [Unknown]
  - Local swelling [Unknown]
